FAERS Safety Report 18196549 (Version 1)
Quarter: 2020Q3

REPORT INFORMATION
  Report Type: Spontaneous
  Country: FI (occurrence: FI)
  Receive Date: 20200826
  Receipt Date: 20200826
  Transmission Date: 20201103
  Serious: Yes (Other)
  Sender: FDA-Public Use
  Company Number: FI-SUN PHARMACEUTICAL INDUSTRIES LTD-2020RR-259001

PATIENT
  Age: 40 Year
  Sex: Female

DRUGS (16)
  1. CITALOPRAM [Suspect]
     Active Substance: CITALOPRAM HYDROBROMIDE
     Dosage: 50 MILLIGRAM, DAILY
     Route: 065
  2. LITHIUM CARBONATE TABS 300 MG [Suspect]
     Active Substance: LITHIUM CARBONATE
     Dosage: 0.5 DOSAGE FORM, DAILY
     Route: 065
     Dates: start: 201502, end: 201502
  3. CITALOPRAM [Suspect]
     Active Substance: CITALOPRAM HYDROBROMIDE
     Dosage: 5 MILLIGRAM, DAILY
     Route: 065
     Dates: end: 2015
  4. LITHIUM CARBONATE TABS 300 MG [Suspect]
     Active Substance: LITHIUM CARBONATE
     Dosage: 2.5 DOSAGE FORM, DAILY
     Route: 065
     Dates: end: 201502
  5. QUETIAPINE. [Suspect]
     Active Substance: QUETIAPINE
     Dosage: LOW DOSE
     Route: 065
     Dates: start: 2008, end: 201503
  6. LITHIUM CARBONATE TABS 300 MG [Suspect]
     Active Substance: LITHIUM CARBONATE
     Indication: BIPOLAR DISORDER
     Dosage: 1 DOSAGE FORM, DAILY
     Route: 065
     Dates: end: 201502
  7. LITHIUM CARBONATE TABS 300 MG [Suspect]
     Active Substance: LITHIUM CARBONATE
     Dosage: 3,4 TIMES A DAY
     Route: 065
     Dates: start: 201308
  8. CITALOPRAM [Suspect]
     Active Substance: CITALOPRAM HYDROBROMIDE
     Dosage: 20 MILLIGRAM, DAILY
     Route: 065
     Dates: end: 2015
  9. ZOPICLONE [Suspect]
     Active Substance: ZOPICLONE
     Indication: SLEEP DISORDER
     Dosage: TO BE TAKEN ONLY WHEN NEEDED
     Route: 065
     Dates: end: 2015
  10. ZOPICLONE [Suspect]
     Active Substance: ZOPICLONE
     Dosage: 3.75 MILLIGRAM, DAILY
     Route: 065
     Dates: end: 2015
  11. ZOPICLONE [Suspect]
     Active Substance: ZOPICLONE
     Dosage: 3.75 MILLIGRAM, DAILY
     Route: 065
     Dates: start: 2015, end: 2015
  12. CITALOPRAM [Suspect]
     Active Substance: CITALOPRAM HYDROBROMIDE
     Indication: ANTIDEPRESSANT THERAPY
     Dosage: 10 MILLIGRAM, DAILY
     Route: 065
     Dates: start: 2015, end: 2015
  13. QUETIAPINE. [Suspect]
     Active Substance: QUETIAPINE
     Indication: BIPOLAR DISORDER
     Dosage: LOW DOSE
     Route: 065
     Dates: start: 2008, end: 201503
  14. CITALOPRAM [Suspect]
     Active Substance: CITALOPRAM HYDROBROMIDE
     Dosage: 20 MILLIGRAM, DAILY
     Route: 065
     Dates: start: 2005
  15. LITHIUM CARBONATE TABS 300 MG [Suspect]
     Active Substance: LITHIUM CARBONATE
     Dosage: 2 DOSAGE FORM, DAILY
     Route: 065
     Dates: end: 201502
  16. ALPRAZOLAM. [Suspect]
     Active Substance: ALPRAZOLAM
     Indication: SLEEP DISORDER
     Dosage: TO BE TAKEN ONLY WHEN NEEDED, TOOK RARELY
     Route: 065
     Dates: end: 2015

REACTIONS (1)
  - Cognitive disorder [Recovering/Resolving]

NARRATIVE: CASE EVENT DATE: 2014
